FAERS Safety Report 5924031-5 (Version None)
Quarter: 2008Q4

REPORT INFORMATION
  Report Type: 
  Country: None (occurrence: None)
  Receive Date: 20081015
  Receipt Date: 20080930
  Transmission Date: 20090506
  Serious: Yes (Hospitalization)
  Sender: FDA-Public Use
  Company Number: 2008S1017789

PATIENT
  Age: 81 Year
  Sex: Female

DRUGS (5)
  1. FLUOXETINE [Suspect]
     Indication: DEPRESSION
     Dosage: 20 MG; ORAL
     Route: 048
     Dates: end: 20080827
  2. AMOXICILLIN [Concomitant]
  3. CANDESARTAN CILEXETIL [Concomitant]
  4. LANSOPRAZOLE [Concomitant]
  5. PREDNISOLONE [Concomitant]

REACTIONS (1)
  - NEUTROPENIA [None]
